FAERS Safety Report 5394404-0 (Version None)
Quarter: 2007Q3

REPORT INFORMATION
  Report Type: 
  Country: None (occurrence: None)
  Receive Date: 20070723
  Receipt Date: 20070717
  Transmission Date: 20080115
  Serious: Yes (Life-Threatening, Hospitalization, Disabling)
  Sender: FDA-Public Use
  Company Number: DE-BRISTOL-MYERS SQUIBB COMPANY-13853510

PATIENT
  Age: 58 Year
  Sex: Female

DRUGS (1)
  1. MITOMYCIN-C BULK POWDER [Suspect]
     Indication: RECTAL CANCER
     Route: 042
     Dates: start: 20060501

REACTIONS (1)
  - PULMONARY VENO-OCCLUSIVE DISEASE [None]
